FAERS Safety Report 4289197-4 (Version None)
Quarter: 2004Q1

REPORT INFORMATION
  Report Type: 
  Country: None (occurrence: None)
  Receive Date: 20040206
  Receipt Date: 20040127
  Transmission Date: 20041129
  Serious: Yes (Life-Threatening, Hospitalization)
  Sender: FDA-Public Use
  Company Number: 2003112422

PATIENT
  Age: 67 Year
  Sex: Male

DRUGS (7)
  1. ACCUPRIL [Suspect]
     Indication: HYPERTENSION
     Dosage: 10 MG (OD), ORAL
     Route: 048
     Dates: start: 20030721, end: 20030804
  2. ACETYLSALICYLIC ACID SRT [Concomitant]
  3. VINPOCETINE (VINPOCETINE) [Concomitant]
  4. NICERGOLINE (NICERGOLINE) [Concomitant]
  5. MEDAZEPAM (MEDAZEPAM) [Concomitant]
  6. ACECLOFENAC (ACECLOFENAC) [Concomitant]
  7. TOLPERISONE (TOLPERISONE) [Concomitant]

REACTIONS (5)
  - ANAEMIA [None]
  - MENTAL DISORDER [None]
  - MYELODYSPLASTIC SYNDROME [None]
  - PANCYTOPENIA [None]
  - WEIGHT INCREASED [None]
